FAERS Safety Report 22609346 (Version 1)
Quarter: 2023Q2

REPORT INFORMATION
  Report Type: Spontaneous
  Country: IE (occurrence: IE)
  Receive Date: 20230616
  Receipt Date: 20230616
  Transmission Date: 20230722
  Serious: Yes (Other)
  Sender: FDA-Public Use
  Company Number: IE-AMERICAN REGENT INC-2023001446

PATIENT
  Age: 17 Year
  Sex: Female
  Weight: 52 kg

DRUGS (1)
  1. FERINJECT [Suspect]
     Active Substance: FERRIC CARBOXYMALTOSE
     Indication: Iron deficiency anaemia
     Dosage: UNK; 1500 MG IN 2 INFUSIONS ONE WEEK APART (1 IN 1 WK)
     Dates: start: 20230516, end: 202305

REACTIONS (5)
  - Hypersomnia [Not Recovered/Not Resolved]
  - Pain in extremity [Not Recovered/Not Resolved]
  - Eye pain [Not Recovered/Not Resolved]
  - Eyelids pruritus [Recovering/Resolving]
  - Swelling of eyelid [Recovering/Resolving]

NARRATIVE: CASE EVENT DATE: 20230516
